FAERS Safety Report 11812351 (Version 1)
Quarter: 2015Q4

REPORT INFORMATION
  Report Type: Spontaneous
  Country: CA (occurrence: CA)
  Receive Date: 20151208
  Receipt Date: 20151208
  Transmission Date: 20160305
  Serious: Yes (Other)
  Sender: FDA-Public Use
  Company Number: CA-TEVA-613733ACC

PATIENT
  Age: 52 Year
  Sex: Male
  Weight: 93.07 kg

DRUGS (3)
  1. ATENOLOL. [Concomitant]
     Active Substance: ATENOLOL
  2. RAMIPRIL. [Concomitant]
     Active Substance: RAMIPRIL
  3. HYDROCHLOROTHIAZIDE. [Suspect]
     Active Substance: HYDROCHLOROTHIAZIDE
     Indication: HYPERTENSION
     Dosage: 25MG
     Route: 048

REACTIONS (2)
  - Hypochloraemia [Unknown]
  - Hyponatraemia [Unknown]
